FAERS Safety Report 6537822-7 (Version None)
Quarter: 2010Q1

REPORT INFORMATION
  Report Type: 
  Country: None (occurrence: None)
  Receive Date: 20100114
  Receipt Date: 20100107
  Transmission Date: 20100710
  Serious: Yes (Other)
  Sender: FDA-Public Use
  Company Number: CA-WYE-G05295210

PATIENT
  Sex: Female

DRUGS (6)
  1. PRISTIQ [Suspect]
     Indication: DEPRESSION
     Route: 048
     Dates: start: 20091224
  2. PRISTIQ [Interacting]
     Indication: PANIC DISORDER
  3. PRISTIQ [Interacting]
     Indication: CRYING
  4. PRISTIQ [Interacting]
     Indication: AGGRESSION
  5. ANTI-ASTHMATICS [Concomitant]
  6. TRYPTAN [Interacting]
     Indication: FIBROMYALGIA
     Dosage: UNKNOWN
     Route: 048

REACTIONS (7)
  - CONFUSIONAL STATE [None]
  - CRYING [None]
  - DRUG INTERACTION [None]
  - FEELING OF BODY TEMPERATURE CHANGE [None]
  - FRUSTRATION [None]
  - SEROTONIN SYNDROME [None]
  - VISION BLURRED [None]
